FAERS Safety Report 7532949-5 (Version None)
Quarter: 2011Q2

REPORT INFORMATION
  Report Type: 
  Country: None (occurrence: None)
  Receive Date: 20110608
  Receipt Date: 20110525
  Transmission Date: 20111010
  Serious: Yes (Other)
  Sender: FDA-Public Use
  Company Number: CA-JNJFOC-20110512676

PATIENT
  Sex: Female
  Weight: 59 kg

DRUGS (2)
  1. VITAMIN B-12 [Concomitant]
     Route: 065
  2. REMICADE [Suspect]
     Indication: CROHN'S DISEASE
     Route: 042
     Dates: start: 20100321

REACTIONS (4)
  - FLATULENCE [None]
  - VOMITING [None]
  - FEELING ABNORMAL [None]
  - ABDOMINAL DISTENSION [None]
